FAERS Safety Report 4741239-5 (Version None)
Quarter: 2005Q3

REPORT INFORMATION
  Report Type: 
  Country: None (occurrence: None)
  Receive Date: 20050803
  Receipt Date: 20041216
  Transmission Date: 20060218
  Serious: Yes (Other)
  Sender: FDA-Public Use
  Company Number: 2004-12-0918

PATIENT
  Sex: Female

DRUGS (1)
  1. INTRON A [Suspect]
     Indication: MALIGNANT MELANOMA
     Dosage: IV;  17 MIU
     Route: 042
     Dates: start: 20041201

REACTIONS (5)
  - ALANINE AMINOTRANSFERASE INCREASED [None]
  - ASPARTATE AMINOTRANSFERASE INCREASED [None]
  - FATIGUE [None]
  - HEADACHE [None]
  - INFLUENZA LIKE ILLNESS [None]
